FAERS Safety Report 12610762 (Version 1)
Quarter: 2016Q3

REPORT INFORMATION
  Report Type: Spontaneous
  Country: IR (occurrence: IR)
  Receive Date: 20160801
  Receipt Date: 20160801
  Transmission Date: 20161109
  Serious: Yes (Death)
  Sender: FDA-Public Use
  Company Number: IR-SA-2016SA138033

PATIENT
  Age: 12 Month
  Sex: Male
  Weight: 13 kg

DRUGS (1)
  1. MYOZYME [Suspect]
     Active Substance: ALGLUCOSIDASE ALFA
     Indication: GLYCOGEN STORAGE DISEASE TYPE II
     Route: 042
     Dates: end: 2016

REACTIONS (2)
  - Respiratory tract infection [Fatal]
  - Organ failure [Fatal]
